FAERS Safety Report 16966352 (Version 1)
Quarter: 2019Q4

REPORT INFORMATION
  Report Type: Spontaneous
  Country: AL (occurrence: AL)
  Receive Date: 20191028
  Receipt Date: 20191028
  Transmission Date: 20200122
  Serious: Yes (Hospitalization)
  Sender: FDA-Public Use
  Company Number: AL-SCILEX PHARMACEUTICALS INC.-2019SCX00078

PATIENT
  Age: 31 Year
  Sex: Female

DRUGS (4)
  1. LIDOCAINE. [Suspect]
     Active Substance: LIDOCAINE
     Dosage: LIDOCAINE 2% DILUTED 1:100
     Route: 023
  2. LIDOCAINE. [Suspect]
     Active Substance: LIDOCAINE
     Indication: DENTAL CARE
     Dosage: INITIAL DOSE NOT SPECIFIED
     Route: 065
  3. EPINEPHRINE. [Concomitant]
     Active Substance: EPINEPHRINE
     Route: 065
  4. LIDOCAINE. [Suspect]
     Active Substance: LIDOCAINE
     Dosage: LIDOCAINE 2% DILUTED 1:100UNK
     Route: 023

REACTIONS (1)
  - Anaphylactic reaction [Recovered/Resolved]
